FAERS Safety Report 7505528-3 (Version None)
Quarter: 2011Q2

REPORT INFORMATION
  Report Type: 
  Country: None (occurrence: None)
  Receive Date: 20110526
  Receipt Date: 20110518
  Transmission Date: 20111010
  Serious: Yes (Other)
  Sender: FDA-Public Use
  Company Number: JP-ASTELLAS-2011JP003417

PATIENT
  Sex: Female

DRUGS (1)
  1. VESICARE [Suspect]
     Dosage: 5 MG, UNKNOWN/D
     Route: 048
     Dates: start: 20110428

REACTIONS (2)
  - DECREASED APPETITE [None]
  - ABASIA [None]
